FAERS Safety Report 4554411-4 (Version None)
Quarter: 2005Q1

REPORT INFORMATION
  Report Type: 
  Country: None (occurrence: None)
  Receive Date: 20041230
  Receipt Date: 20040423
  Transmission Date: 20050727
  Serious: Yes (Life-Threatening, Hospitalization)
  Sender: FDA-Public Use
  Company Number: US-SHR-03-015145

PATIENT
  Age: 80 Year
  Sex: Female
  Weight: 90.7 kg

DRUGS (8)
  1. BETAPACE [Suspect]
     Indication: ATRIAL FIBRILLATION
     Dosage: 80 MG, 2X/DAY, ORAL
     Route: 048
     Dates: start: 20030507, end: 20030529
  2. ASPIRIN [Concomitant]
  3. DIPYRIDAMOLE [Concomitant]
  4. CLONIDINE [Concomitant]
  5. LEVOXYL [Concomitant]
  6. PAXIL [Concomitant]
  7. PRAVACHOL [Concomitant]
  8. AVALIDE (IRBESARTAN) [Concomitant]

REACTIONS (2)
  - CONTUSION [None]
  - THROMBOCYTOPENIA [None]
